FAERS Safety Report 16011943 (Version 1)
Quarter: 2019Q1

REPORT INFORMATION
  Report Type: Spontaneous
  Country: US (occurrence: US)
  Receive Date: 20190226
  Receipt Date: 20190226
  Transmission Date: 20190418
  Serious: Yes (Other)
  Sender: FDA-Public Use
  Company Number: None

PATIENT
  Age: 62 Year
  Sex: Female
  Weight: 52.97 kg

DRUGS (14)
  1. ONDASETRON HCL [Concomitant]
     Active Substance: ONDANSETRON HYDROCHLORIDE
  2. GINGER. [Concomitant]
     Active Substance: GINGER
  3. VOTRIENT [Suspect]
     Active Substance: PAZOPANIB HYDROCHLORIDE
     Indication: THROMBOCYTOPENIA
     Route: 048
     Dates: start: 20190131
  4. PROCHLORPERAZINE. [Concomitant]
     Active Substance: PROCHLORPERAZINE
  5. TURMERIC [Concomitant]
     Active Substance: HERBALS\TURMERIC
  6. ESZOPICLONE. [Concomitant]
     Active Substance: ESZOPICLONE
  7. SPIRULINA [Concomitant]
     Active Substance: SPIRULINA
  8. VOTRIENT [Suspect]
     Active Substance: PAZOPANIB HYDROCHLORIDE
     Indication: OVARIAN CANCER
     Route: 048
     Dates: start: 20190131
  9. ASHWAGANDHA [Concomitant]
     Active Substance: HERBALS
  10. DRONABINOL. [Concomitant]
     Active Substance: DRONABINOL
  11. LORATADINE. [Concomitant]
     Active Substance: LORATADINE
  12. LORAZEPAM. [Concomitant]
     Active Substance: LORAZEPAM
  13. CHOLESTYRAMINE. [Concomitant]
     Active Substance: CHOLESTYRAMINE
  14. FLUTICASONE PROPIONATE. [Concomitant]
     Active Substance: FLUTICASONE PROPIONATE

REACTIONS (1)
  - Diarrhoea [None]
